FAERS Safety Report 9818922 (Version 1)
Quarter: 2014Q1

REPORT INFORMATION
  Report Type: Spontaneous
  Country: CN (occurrence: CN)
  Receive Date: 20140115
  Receipt Date: 20140115
  Transmission Date: 20141002
  Serious: Yes (Death, Other)
  Sender: FDA-Public Use
  Company Number: CN-PFIZER INC-2014008715

PATIENT
  Age: 5 Month
  Sex: 0

DRUGS (1)
  1. ZITHROMAX [Suspect]
     Indication: UPPER RESPIRATORY TRACT INFECTION
     Dosage: 10 MG/KG, 1X/DAY
     Route: 048

REACTIONS (3)
  - Traumatic liver injury [Fatal]
  - Hepatic failure [Fatal]
  - Drug effect incomplete [Unknown]
